FAERS Safety Report 12732057 (Version 1)
Quarter: 2016Q3

REPORT INFORMATION
  Report Type: Spontaneous
  Country: US (occurrence: US)
  Receive Date: 20160909
  Receipt Date: 20160909
  Transmission Date: 20161109
  Serious: Yes (Other)
  Sender: FDA-Public Use
  Company Number: None

PATIENT
  Age: 44 Year
  Sex: Female

DRUGS (4)
  1. CYMBALTA [Concomitant]
     Active Substance: DULOXETINE HYDROCHLORIDE
  2. HUMIRA [Suspect]
     Active Substance: ADALIMUMAB
     Indication: RHEUMATOID ARTHRITIS
     Dosage: OTHER STRENGTH:;OTHER DOSE:;OTHER FREQUENCY:EVERY OTHER WEEK;OTHER ROUTE:
     Route: 058
     Dates: start: 20150312
  3. VITAMIN D [Concomitant]
     Active Substance: CHOLECALCIFEROL
  4. CELEBREX [Concomitant]
     Active Substance: CELECOXIB

REACTIONS (1)
  - Bronchitis [None]

NARRATIVE: CASE EVENT DATE: 20160819
